FAERS Safety Report 9350288 (Version 2)
Quarter: 2013Q3

REPORT INFORMATION
  Report Type: Report from Study
  Country: US (occurrence: US)
  Receive Date: 20130617
  Receipt Date: 20130716
  Transmission Date: 20140515
  Serious: Yes (Hospitalization)
  Sender: FDA-Public Use
  Company Number: US-ROCHE-1177036

PATIENT
  Age: 70 Year
  Sex: Female
  Weight: 42.62 kg

DRUGS (13)
  1. CAPECITABINE [Suspect]
     Indication: BREAST CANCER METASTATIC
     Route: 048
     Dates: start: 20120501, end: 20121008
  2. CAPECITABINE [Suspect]
     Route: 048
     Dates: start: 20121029, end: 20121029
  3. ZANTAC [Concomitant]
     Route: 065
     Dates: start: 20120828, end: 20121008
  4. SPIRONOLACTONE [Concomitant]
     Route: 065
     Dates: start: 20120514
  5. LEVOTHYROXINE [Concomitant]
     Route: 065
     Dates: start: 20100724
  6. SOLIFENACIN SUCCINATE [Concomitant]
     Route: 065
     Dates: start: 20101122
  7. SPIRIVA [Concomitant]
     Route: 065
     Dates: start: 2011
  8. PREDNISOLONE ACETATE [Concomitant]
     Route: 065
     Dates: start: 20120905
  9. TUMS [Concomitant]
     Route: 065
     Dates: start: 20120918
  10. DEXAMETHASONE [Concomitant]
     Route: 065
     Dates: start: 20120710
  11. LORAZEPAM [Concomitant]
     Route: 065
     Dates: start: 20120731
  12. CALCIUM CARBONATE/CHOLECALCIFEROL [Concomitant]
     Route: 065
     Dates: start: 20100624
  13. COLACE [Concomitant]
     Route: 065
     Dates: start: 20120924, end: 20121001

REACTIONS (3)
  - Decreased appetite [Unknown]
  - Duodenal stenosis [Recovered/Resolved]
  - Abdominal pain [Recovering/Resolving]
